FAERS Safety Report 5248672-6 (Version None)
Quarter: 2007Q1

REPORT INFORMATION
  Report Type: 
  Country: None (occurrence: None)
  Receive Date: 20070226
  Receipt Date: 20070226
  Transmission Date: 20070707
  Serious: No
  Sender: FDA-Public Use
  Company Number: None

PATIENT
  Sex: Female
  Weight: 70.3075 kg

DRUGS (2)
  1. IMIPRAMINE [Suspect]
     Indication: ANXIETY
     Dosage: TAKE 3 TABLETS AT BEDTIME PO
     Route: 048
     Dates: start: 20070218, end: 20070221
  2. IMIPRAMINE [Suspect]
     Indication: DEPRESSION
     Dosage: TAKE 3 TABLETS AT BEDTIME PO
     Route: 048
     Dates: start: 20070218, end: 20070221

REACTIONS (3)
  - HOT FLUSH [None]
  - NAUSEA [None]
  - NIGHT SWEATS [None]
